FAERS Safety Report 8448652-3 (Version None)
Quarter: 2012Q2

REPORT INFORMATION
  Report Type: 
  Country: None (occurrence: None)
  Receive Date: 20120619
  Receipt Date: 20120607
  Transmission Date: 20120825
  Serious: No
  Sender: FDA-Public Use
  Company Number: US-ASTRAZENECA-2012SE38254

PATIENT
  Age: 61 Year
  Sex: Female

DRUGS (2)
  1. ARIMIDEX [Suspect]
     Route: 048
     Dates: start: 20080101
  2. ARIMIDEX [Suspect]
     Indication: BREAST CANCER
     Dosage: GENERIC
     Route: 048

REACTIONS (9)
  - BLOOD GLUCOSE INCREASED [None]
  - BLOOD TRIGLYCERIDES INCREASED [None]
  - NIGHT SWEATS [None]
  - BONE PAIN [None]
  - HOT FLUSH [None]
  - GLYCOSYLATED HAEMOGLOBIN INCREASED [None]
  - WEIGHT INCREASED [None]
  - BLOOD CHOLESTEROL INCREASED [None]
  - ABDOMINAL DISTENSION [None]
